FAERS Safety Report 8825220 (Version 2)
Quarter: 2014Q3

REPORT INFORMATION
  Report Type: Report from Study
  Country: US (occurrence: US)
  Receive Date: 20121004
  Receipt Date: 20140909
  Transmission Date: 20150326
  Serious: Yes (Hospitalization)
  Sender: FDA-Public Use
  Company Number: US-ROCHE-1134794

PATIENT
  Sex: Male
  Weight: 73.18 kg

DRUGS (2)
  1. RITUXAN [Suspect]
     Active Substance: RITUXIMAB
     Route: 065
     Dates: start: 20071211
  2. RITUXAN [Suspect]
     Active Substance: RITUXIMAB
     Indication: THROMBOCYTOPENIA
     Route: 042

REACTIONS (2)
  - Platelet count decreased [Unknown]
  - Off label use [Unknown]
